FAERS Safety Report 4673911-X (Version None)
Quarter: 2005Q2

REPORT INFORMATION
  Report Type: 
  Country: None (occurrence: None)
  Receive Date: 20050525
  Receipt Date: 20030122
  Transmission Date: 20051028
  Serious: Yes (Hospitalization)
  Sender: FDA-Public Use
  Company Number: AU-MERCK-0503AUS00149

PATIENT
  Age: 63 Year
  Sex: Male

DRUGS (5)
  1. VIOXX [Suspect]
     Indication: OSTEOARTHRITIS
     Route: 048
     Dates: start: 20020924, end: 20021003
  2. BECLOMETHASONE DIPROPIONATE [Concomitant]
     Indication: SEASONAL ALLERGY
     Route: 055
     Dates: start: 20001005, end: 20021003
  3. [THERAPY UNSPECIFIED] [Concomitant]
     Route: 065
  4. GRISEOFULVIN [Concomitant]
     Route: 065
     Dates: start: 20020903, end: 20020927
  5. VERAPAMIL HYDROCHLORIDE [Concomitant]
     Route: 048
     Dates: start: 20010917, end: 20021003

REACTIONS (9)
  - ACUTE MYOCARDIAL INFARCTION [None]
  - ANXIETY [None]
  - DRUG INEFFECTIVE [None]
  - EMOTIONAL DISTRESS [None]
  - HYPERLIPIDAEMIA [None]
  - PAIN [None]
  - PELVIC HAEMATOMA [None]
  - STRESS [None]
  - TINEA INFECTION [None]
